FAERS Safety Report 9278856 (Version 1)
Quarter: 2013Q2

REPORT INFORMATION
  Report Type: Spontaneous
  Country: US (occurrence: US)
  Receive Date: 20130508
  Receipt Date: 20130508
  Transmission Date: 20140414
  Serious: Yes (Other)
  Sender: FDA-Public Use
  Company Number: PHHY2013US044590

PATIENT
  Sex: 0

DRUGS (2)
  1. PROPRANOLOL [Suspect]
     Indication: PHACES SYNDROME
     Dosage: 1 MG/KG, UNK
     Route: 048
  2. PREDNISOLONE [Concomitant]
     Indication: PHACES SYNDROME
     Dosage: 2 MG/KG, UNK
     Route: 048

REACTIONS (2)
  - Soft tissue necrosis [Recovered/Resolved]
  - Skin ulcer [Recovered/Resolved]
